FAERS Safety Report 16114695 (Version 4)
Quarter: 2019Q2

REPORT INFORMATION
  Report Type: Spontaneous
  Country: US (occurrence: US)
  Receive Date: 20190325
  Receipt Date: 20190606
  Transmission Date: 20190711
  Serious: Yes (Other)
  Sender: FDA-Public Use
  Company Number: US-PURDUE PHARMA-USA-2019-0146592

PATIENT
  Age: 80 Year
  Sex: Female
  Weight: 52.15 kg

DRUGS (8)
  1. OXYCONTIN [Suspect]
     Active Substance: OXYCODONE HYDROCHLORIDE
     Indication: PAIN
     Dosage: 20 MG, BID
     Route: 048
     Dates: start: 1999
  2. OXYCONTIN [Suspect]
     Active Substance: OXYCODONE HYDROCHLORIDE
     Dosage: 15 MG, UNK
     Route: 048
     Dates: start: 201902
  3. HYDROCODONE BITARTRATE (SIMILAR TO NDA 206627) [Suspect]
     Active Substance: HYDROCODONE BITARTRATE
     Indication: PRODUCT USED FOR UNKNOWN INDICATION
     Route: 048
  4. OXYCONTIN [Suspect]
     Active Substance: OXYCODONE HYDROCHLORIDE
     Dosage: 20 MG, UNK
     Route: 048
  5. LISINOPRIL. [Concomitant]
     Active Substance: LISINOPRIL
     Indication: PRODUCT USED FOR UNKNOWN INDICATION
     Route: 048
  6. OXYCONTIN [Suspect]
     Active Substance: OXYCODONE HYDROCHLORIDE
     Dosage: 40 MG, TID
     Route: 048
     Dates: start: 2004, end: 2008
  7. OXYCODONE HYDROCHLORIDE (SIMILAR TO NDA 22-272) [Concomitant]
     Active Substance: OXYCODONE HYDROCHLORIDE
     Indication: BREAKTHROUGH PAIN
     Route: 048
  8. DILAUDID [Concomitant]
     Active Substance: HYDROMORPHONE HYDROCHLORIDE
     Indication: BREAKTHROUGH PAIN
     Dosage: 2 MG, UNK
     Route: 048

REACTIONS (31)
  - Pain [Not Recovered/Not Resolved]
  - Hypertension [Unknown]
  - Drug withdrawal syndrome [Not Recovered/Not Resolved]
  - Haemorrhage [Unknown]
  - Gait inability [Unknown]
  - Tremor [Not Recovered/Not Resolved]
  - Off label use [Recovered/Resolved]
  - Vertigo [Unknown]
  - Visual impairment [Unknown]
  - Swelling [Unknown]
  - Haemorrhoidal haemorrhage [Recovered/Resolved]
  - Neck injury [Unknown]
  - Headache [Not Recovered/Not Resolved]
  - Unevaluable event [Not Recovered/Not Resolved]
  - Myalgia [Unknown]
  - Limb injury [Unknown]
  - Anxiety [Unknown]
  - Constipation [Not Recovered/Not Resolved]
  - Decreased appetite [Unknown]
  - Nausea [Unknown]
  - Gallbladder disorder [Unknown]
  - Malaise [Not Recovered/Not Resolved]
  - Cartilage injury [Unknown]
  - Joint dislocation [Unknown]
  - Dry mouth [Not Recovered/Not Resolved]
  - Drug ineffective [Unknown]
  - Panic attack [Not Recovered/Not Resolved]
  - Nervousness [Not Recovered/Not Resolved]
  - Hypersensitivity [Unknown]
  - Confusional state [Not Recovered/Not Resolved]
  - Colonoscopy [Recovered/Resolved]

NARRATIVE: CASE EVENT DATE: 1999
